FAERS Safety Report 8993252 (Version 1)
Quarter: 2013Q1

REPORT INFORMATION
  Report Type: Spontaneous
  Country: US (occurrence: US)
  Receive Date: 20130102
  Receipt Date: 20130102
  Transmission Date: 20140127
  Serious: No
  Sender: FDA-Public Use
  Company Number: US-PFIZER INC-US-WYE-H13807410

PATIENT
  Age: 71 Year
  Sex: Female
  Weight: 81.63 kg

DRUGS (9)
  1. ALAVERT [Suspect]
     Indication: COUGH
     Dosage: 1 TABLET 1 TIME DAILY
     Route: 048
     Dates: start: 20100216, end: 20100220
  2. ALAVERT [Suspect]
     Indication: HYPERSENSITIVITY
     Dosage: 10 MG, DAILY
     Dates: start: 201211, end: 201212
  3. ALAVERT [Suspect]
     Indication: RHINORRHOEA
  4. ALAVERT [Suspect]
     Indication: THROAT IRRITATION
  5. ALAVERT [Suspect]
     Indication: APHONIA
  6. ALAVERT [Suspect]
     Indication: INCREASED UPPER AIRWAY SECRETION
  7. BENICAR [Concomitant]
     Dosage: UNK
  8. GARLIC [Concomitant]
     Dosage: UNK
  9. FISH OIL [Concomitant]
     Dosage: UNK

REACTIONS (1)
  - Drug ineffective [Unknown]
